FAERS Safety Report 8435381-5 (Version None)
Quarter: 2012Q2

REPORT INFORMATION
  Report Type: 
  Country: None (occurrence: None)
  Receive Date: 20120614
  Receipt Date: 20120608
  Transmission Date: 20120825
  Serious: Yes (Other)
  Sender: FDA-Public Use
  Company Number: PHHY2012CO032129

PATIENT
  Sex: Male

DRUGS (2)
  1. LOVAZA [Concomitant]
  2. ZOLEDRONOC ACID [Suspect]
     Dosage: 5 MG, UNK
     Route: 042
     Dates: start: 20120201

REACTIONS (4)
  - COAGULOPATHY [None]
  - MOBILITY DECREASED [None]
  - SKIN DISORDER [None]
  - PLATELET COUNT DECREASED [None]
